FAERS Safety Report 6114115-3 (Version None)
Quarter: 2009Q1

REPORT INFORMATION
  Report Type: 
  Country: None (occurrence: None)
  Receive Date: 20090312
  Receipt Date: 20081008
  Transmission Date: 20090719
  Serious: Yes (Congenital Anomaly)
  Sender: FDA-Public Use
  Company Number: US-ABBOTT-00P-163-0087300-00

PATIENT
  Sex: Female
  Weight: 3.192 kg

DRUGS (1)
  1. DEPAKOTE [Suspect]
     Indication: DRUG EXPOSURE DURING PREGNANCY
     Route: 064

REACTIONS (8)
  - ANOMALY OF EXTERNAL EAR CONGENITAL [None]
  - ATRIAL SEPTAL DEFECT [None]
  - CONGENITAL MUSCULOSKELETAL ANOMALY [None]
  - DRUG EXPOSURE DURING PREGNANCY [None]
  - DYSMORPHISM [None]
  - JOINT CONTRACTURE [None]
  - LIMB MALFORMATION [None]
  - PATENT DUCTUS ARTERIOSUS [None]
